FAERS Safety Report 4676222-1 (Version None)
Quarter: 2005Q2

REPORT INFORMATION
  Report Type: 
  Country: None (occurrence: None)
  Receive Date: 20050527
  Receipt Date: 20050201
  Transmission Date: 20051028
  Serious: Yes (Other)
  Sender: FDA-Public Use
  Company Number: US-GLAXOSMITHKLINE-A0543326A

PATIENT
  Sex: Female

DRUGS (3)
  1. WELLBUTRIN [Suspect]
     Indication: DRUG USE FOR UNKNOWN INDICATION
     Route: 048
  2. LEXAPRO [Concomitant]
  3. RISPERDAL [Concomitant]

REACTIONS (1)
  - CONVULSION [None]
